APPROVED DRUG PRODUCT: ASTEPRO
Active Ingredient: AZELASTINE HYDROCHLORIDE
Strength: 0.2055MG/SPRAY
Dosage Form/Route: SPRAY, METERED;NASAL
Application: N022203 | Product #002
Applicant: VIATRIS SPECIALTY LLC
Approved: Aug 31, 2009 | RLD: No | RS: No | Type: DISCN

PATENTS:
Patent 8071073 | Expires: Jun 4, 2028